FAERS Safety Report 7564229-6 (Version None)
Quarter: 2011Q2

REPORT INFORMATION
  Report Type: 
  Country: None (occurrence: None)
  Receive Date: 20110622
  Receipt Date: 20110607
  Transmission Date: 20111010
  Serious: Yes (Hospitalization)
  Sender: FDA-Public Use
  Company Number: PHHY2011NL49997

PATIENT
  Sex: Female

DRUGS (7)
  1. EXELON [Suspect]
     Indication: DEMENTIA
     Dosage: 4.6MG/24H
     Route: 062
     Dates: start: 20110507, end: 20110509
  2. SIMVASTATIN [Suspect]
     Indication: HYPERCHOLESTEROLAEMIA
     Dosage: 40 MG, QD
     Route: 048
     Dates: start: 20080101, end: 20110509
  3. PANTOPRAZOLE [Suspect]
     Indication: ULCER
     Dosage: 20 MG, QD
     Route: 048
     Dates: start: 20110301, end: 20110510
  4. ACENOCOUMAROL [Concomitant]
     Dosage: 1 MG, DAILY
     Route: 048
     Dates: start: 20080101
  5. METOPROLOL TARTRATE [Concomitant]
     Dosage: 100 MG, QD
     Route: 048
     Dates: start: 20080101
  6. PREDNISOLONE [Concomitant]
     Dosage: 5 MG, QD
     Route: 048
     Dates: start: 20110301
  7. AMLODIPINE [Suspect]
     Indication: HYPERTENSION
     Dosage: 10 MG, QD
     Route: 048
     Dates: start: 20080101, end: 20110509

REACTIONS (1)
  - THROMBOCYTOPENIA [None]
